FAERS Safety Report 17553245 (Version 2)
Quarter: 2021Q3

REPORT INFORMATION
  Report Type: Spontaneous
  Country: US (occurrence: US)
  Receive Date: 20200318
  Receipt Date: 20210702
  Transmission Date: 20211014
  Serious: Yes (Hospitalization, Other)
  Sender: FDA-Public Use
  Company Number: US-ASTRAZENECA-2020SE36664

PATIENT
  Age: 24683 Day
  Sex: Female

DRUGS (72)
  1. NEXIUM [Suspect]
     Active Substance: ESOMEPRAZOLE MAGNESIUM
     Indication: GASTROOESOPHAGEAL REFLUX DISEASE
     Route: 048
     Dates: start: 2002, end: 2018
  2. AUGMENTIN [Concomitant]
     Active Substance: AMOXICILLIN\CLAVULANATE POTASSIUM
  3. CLOPIDOGREL [Concomitant]
     Active Substance: CLOPIDOGREL BISULFATE
  4. CIPRO [Concomitant]
     Active Substance: CIPROFLOXACIN HYDROCHLORIDE
  5. PARACETAMOL/DEXTROPROPOXYPHENE [Concomitant]
  6. AMITRIPTYLINE [Concomitant]
     Active Substance: AMITRIPTYLINE
  7. ZANAFLEX [Concomitant]
     Active Substance: TIZANIDINE HYDROCHLORIDE
  8. BUSPIRONE [Concomitant]
     Active Substance: BUSPIRONE HYDROCHLORIDE
     Indication: ANXIETY
  9. AMOXICILLIN CLAVULANATE [Concomitant]
     Active Substance: AMOXICILLIN\CLAVULANIC ACID
  10. BENZONATATE. [Concomitant]
     Active Substance: BENZONATATE
  11. PLAVIX [Concomitant]
     Active Substance: CLOPIDOGREL BISULFATE
  12. POTASSIUM CHLORIDE. [Concomitant]
     Active Substance: POTASSIUM CHLORIDE
  13. XENICAL [Concomitant]
     Active Substance: ORLISTAT
  14. NEXIUM [Suspect]
     Active Substance: ESOMEPRAZOLE MAGNESIUM
     Indication: GASTROOESOPHAGEAL REFLUX DISEASE
     Dosage: GENERIC
     Route: 065
     Dates: start: 2017, end: 2018
  15. ZANTAC [Concomitant]
     Active Substance: RANITIDINE HYDROCHLORIDE
  16. ATROPINE SULFATE\DIPHENOXYLATE [Concomitant]
     Active Substance: ATROPINE SULFATE\DIPHENOXYLATE
  17. ONGLYZA [Concomitant]
     Active Substance: SAXAGLIPTIN HYDROCHLORIDE
  18. LANTUS [Concomitant]
     Active Substance: INSULIN GLARGINE
  19. NITROFURANTOIN. [Concomitant]
     Active Substance: NITROFURANTOIN
  20. PULMICORT TURBUHALER [Concomitant]
     Active Substance: BUDESONIDE
  21. BACLOFEN. [Concomitant]
     Active Substance: BACLOFEN
  22. REQUIP [Concomitant]
     Active Substance: ROPINIROLE HYDROCHLORIDE
  23. FENTANYL. [Concomitant]
     Active Substance: FENTANYL
  24. POLYETHYLENE GLYCOL [Concomitant]
     Active Substance: POLYETHYLENE GLYCOLS
  25. LISINOPRIL?HCTZ [Concomitant]
     Active Substance: HYDROCHLOROTHIAZIDE\LISINOPRIL
     Indication: POLYURIA
  26. TRAMADOL. [Concomitant]
     Active Substance: TRAMADOL
     Indication: PAIN
  27. CLINDAMYCIN. [Concomitant]
     Active Substance: CLINDAMYCIN
     Indication: ANTIBIOTIC LEVEL
  28. VITAMIN D [Concomitant]
     Active Substance: VITAMIN D NOS
     Indication: SUPPLEMENTATION THERAPY
  29. BENADRYL [Concomitant]
     Active Substance: DIPHENHYDRAMINE HYDROCHLORIDE
  30. MORPHINE SULFATE. [Concomitant]
     Active Substance: MORPHINE SULFATE
  31. FLUCONAZOLE. [Concomitant]
     Active Substance: FLUCONAZOLE
  32. BITARTRATE/ HOMATROPINE [Concomitant]
  33. COMBIVENT [Concomitant]
     Active Substance: ALBUTEROL SULFATE\IPRATROPIUM BROMIDE
  34. OXYCODONE AND ACETAMINOPHEN [Concomitant]
     Active Substance: ACETAMINOPHEN\OXYCODONE HYDROCHLORIDE
  35. FLONASE [Concomitant]
     Active Substance: FLUTICASONE PROPIONATE
  36. ROSUVASTATIN. [Concomitant]
     Active Substance: ROSUVASTATIN
     Indication: BLOOD CHOLESTEROL ABNORMAL
  37. ARIPIROAZOLE [Concomitant]
     Indication: BIPOLAR DISORDER
  38. SODIUM PHENOLATE [Concomitant]
     Active Substance: PHENOLATE SODIUM
  39. SMZ/TMP [Concomitant]
     Active Substance: SULFAMETHOXAZOLE\TRIMETHOPRIM
  40. METFORMIN HYDROCHLORIDE. [Concomitant]
     Active Substance: METFORMIN HYDROCHLORIDE
  41. CODEINE [Concomitant]
     Active Substance: CODEINE
  42. OMEPRAZOLE. [Suspect]
     Active Substance: OMEPRAZOLE
     Indication: GASTROOESOPHAGEAL REFLUX DISEASE
     Dosage: GENERIC
     Route: 065
     Dates: start: 2006, end: 2007
  43. AMLODIPINE [Concomitant]
     Active Substance: AMLODIPINE BESYLATE
     Indication: BLOOD PRESSURE ABNORMAL
  44. FEXOFENADINE [Concomitant]
     Active Substance: FEXOFENADINE HYDROCHLORIDE
  45. LYRICA [Concomitant]
     Active Substance: PREGABALIN
  46. LIPITOR [Concomitant]
     Active Substance: ATORVASTATIN CALCIUM
  47. NYSTATIN. [Concomitant]
     Active Substance: NYSTATIN
  48. GABAPENTIN. [Concomitant]
     Active Substance: GABAPENTIN
  49. LORAZEPAM. [Concomitant]
     Active Substance: LORAZEPAM
  50. CYCLOBENZAPRINE. [Concomitant]
     Active Substance: CYCLOBENZAPRINE
  51. BETAMETHASONE VALERATE. [Concomitant]
     Active Substance: BETAMETHASONE VALERATE
  52. LIDODERM [Concomitant]
     Active Substance: LIDOCAINE
  53. PHENAZOPYRIDINE. [Concomitant]
     Active Substance: PHENAZOPYRIDINE
  54. PROMETHAZINE [Concomitant]
     Active Substance: PROMETHAZINE HYDROCHLORIDE
  55. SEROQUEL [Concomitant]
     Active Substance: QUETIAPINE FUMARATE
  56. DETROL [Concomitant]
     Active Substance: TOLTERODINE TARTRATE
  57. AVANDIA [Concomitant]
     Active Substance: ROSIGLITAZONE MALEATE
  58. SKELAXIN [Concomitant]
     Active Substance: METAXALONE
  59. NEXIUM [Suspect]
     Active Substance: ESOMEPRAZOLE MAGNESIUM
     Indication: GASTROOESOPHAGEAL REFLUX DISEASE
     Route: 048
     Dates: start: 2002, end: 2017
  60. TAMSULOSIN [Concomitant]
     Active Substance: TAMSULOSIN
     Indication: URINARY TRACT INFECTION
  61. EPOGEN [Concomitant]
     Active Substance: ERYTHROPOIETIN
  62. AMPICILLIN/PHENAZOPYRIDINE [Concomitant]
  63. TRIAMCINOLONE ACETONIDE. [Concomitant]
     Active Substance: TRIAMCINOLONE ACETONIDE
  64. HYDROMORPHONE [Concomitant]
     Active Substance: HYDROMORPHONE
  65. METOPROLOL SUCCINATE. [Concomitant]
     Active Substance: METOPROLOL SUCCINATE
  66. THEOPHYLLINE [Concomitant]
     Active Substance: THEOPHYLLINE ANHYDROUS
  67. GLYBURIDE. [Concomitant]
     Active Substance: GLYBURIDE
     Indication: BLOOD GLUCOSE ABNORMAL
  68. ONDANSETRON [Concomitant]
     Active Substance: ONDANSETRON
     Indication: NAUSEA
  69. CEFDINIR. [Concomitant]
     Active Substance: CEFDINIR
  70. LITHIUM CARBONATE. [Concomitant]
     Active Substance: LITHIUM CARBONATE
  71. PENICILLIN VK [Concomitant]
     Active Substance: PENICILLIN V POTASSIUM
  72. GEODON [Concomitant]
     Active Substance: ZIPRASIDONE HYDROCHLORIDE\ZIPRASIDONE MESYLATE

REACTIONS (5)
  - Renal tubular necrosis [Unknown]
  - Chronic kidney disease [Not Recovered/Not Resolved]
  - Renal failure [Unknown]
  - Hyperparathyroidism secondary [Unknown]
  - Acute kidney injury [Not Recovered/Not Resolved]

NARRATIVE: CASE EVENT DATE: 20151008
